FAERS Safety Report 4392638-5 (Version None)
Quarter: 2004Q3

REPORT INFORMATION
  Report Type: 
  Country: None (occurrence: None)
  Receive Date: 20040701
  Receipt Date: 20040616
  Transmission Date: 20050211
  Serious: Yes (Hospitalization)
  Sender: FDA-Public Use
  Company Number: D01200402189

PATIENT
  Age: 75 Year
  Sex: Female

DRUGS (11)
  1. FONDAPARINUX - SOLUTION [Suspect]
     Indication: ANGINA UNSTABLE
     Dosage: 2.5 MG QD; SUBCUTANTOUS
     Route: 058
     Dates: start: 20040511, end: 20040513
  2. ASPIRIN [Concomitant]
  3. MONOPRIL (FOSINOPIRL SODIUM) [Concomitant]
  4. BISOPROLOL FUMARATE [Concomitant]
  5. AMLODIPINE [Concomitant]
  6. QUERCETIN [Concomitant]
  7. TRENTAL (PENTOXIFLYLLINE) [Concomitant]
  8. INSULIN [Concomitant]
  9. FUROSEMIDE [Concomitant]
  10. EUPHYLLIN (AMINOPHYLLINE) [Concomitant]
  11. CAVINTON (VINPOCETINE) [Concomitant]

REACTIONS (4)
  - HAEMODIALYSIS [None]
  - HYPERTENSION [None]
  - NEPHRITIS INTERSTITIAL [None]
  - RENAL FAILURE [None]
